FAERS Safety Report 4962799-5 (Version None)
Quarter: 2006Q2

REPORT INFORMATION
  Report Type: 
  Country: None (occurrence: None)
  Receive Date: 20060404
  Receipt Date: 20051110
  Transmission Date: 20061013
  Serious: Yes (Hospitalization, Other)
  Sender: FDA-Public Use
  Company Number: US-MERCK-0511USA01895

PATIENT
  Age: 56 Year
  Sex: Female
  Weight: 89 kg

DRUGS (10)
  1. VIOXX [Suspect]
     Indication: BACK PAIN
     Route: 048
     Dates: start: 20020801, end: 20040101
  2. VIOXX [Suspect]
     Indication: SHOULDER PAIN
     Route: 048
     Dates: start: 20020801, end: 20040101
  3. PROTONIX [Concomitant]
     Route: 065
  4. HUMULIN [Concomitant]
     Route: 065
  5. METFORMIN [Concomitant]
     Route: 065
  6. LISINOPRIL [Concomitant]
     Indication: HYPERTENSION
     Route: 065
     Dates: start: 20021104
  7. HYDROCODONE BITARTRATE + ACETAMINOPHEN [Concomitant]
     Indication: PAIN
     Route: 065
     Dates: start: 20010901, end: 20050901
  8. NEURONTIN [Concomitant]
     Route: 065
  9. ASPIRIN [Concomitant]
     Indication: PAIN
     Route: 065
     Dates: start: 19900101, end: 20020101
  10. LASIX [Concomitant]
     Indication: OEDEMA
     Route: 065
     Dates: start: 20020710

REACTIONS (1)
  - CEREBROVASCULAR ACCIDENT [None]
